FAERS Safety Report 7450990-8 (Version None)
Quarter: 2011Q2

REPORT INFORMATION
  Report Type: 
  Country: None (occurrence: None)
  Receive Date: 20110428
  Receipt Date: 20110428
  Transmission Date: 20111010
  Serious: Yes (Hospitalization)
  Sender: FDA-Public Use
  Company Number: None

PATIENT
  Age: 70 Year
  Sex: Male
  Weight: 119 kg

DRUGS (1)
  1. MORPHINE [Suspect]
     Indication: PAIN
     Dosage: 30 MG QID PO
     Route: 048
     Dates: start: 20071130, end: 20110223

REACTIONS (3)
  - CONFUSIONAL STATE [None]
  - HALLUCINATION [None]
  - MENTAL STATUS CHANGES [None]
